FAERS Safety Report 7394911-5 (Version None)
Quarter: 2011Q2

REPORT INFORMATION
  Report Type: 
  Country: None (occurrence: None)
  Receive Date: 20110405
  Receipt Date: 20110328
  Transmission Date: 20111010
  Serious: Yes (Other)
  Sender: FDA-Public Use
  Company Number: B0709552A

PATIENT
  Sex: Male

DRUGS (2)
  1. REQUIP [Suspect]
     Indication: PARKINSON'S DISEASE
     Route: 065
  2. MODOPAR [Concomitant]
     Route: 065

REACTIONS (7)
  - HYPERSEXUALITY [None]
  - DELIRIUM [None]
  - ILLUSION [None]
  - PATHOLOGICAL GAMBLING [None]
  - HALLUCINATION [None]
  - DYSKINESIA [None]
  - SUDDEN ONSET OF SLEEP [None]
